FAERS Safety Report 4615913-5 (Version None)
Quarter: 2005Q1

REPORT INFORMATION
  Report Type: 
  Country: None (occurrence: None)
  Receive Date: 20050318
  Receipt Date: 20050311
  Transmission Date: 20050727
  Serious: No
  Sender: FDA-Public Use
  Company Number: 2005AP01722

PATIENT
  Age: 77 Year
  Sex: Female

DRUGS (7)
  1. NEXIUM [Suspect]
     Dosage: 40 MG DAILY PO
     Route: 048
  2. LEDERMYCIN [Suspect]
  3. BISPHOSPHONATES [Concomitant]
  4. SIMVASTATIN [Concomitant]
  5. FRUSEMIDE [Concomitant]
  6. CALTRATE [Concomitant]
  7. OATELIN [Concomitant]

REACTIONS (2)
  - HYPONATRAEMIA [None]
  - RENAL FAILURE ACUTE [None]
